FAERS Safety Report 13243534 (Version 3)
Quarter: 2019Q4

REPORT INFORMATION
  Report Type: Report from Study
  Country: CZ (occurrence: CZ)
  Receive Date: 20170217
  Receipt Date: 20191129
  Transmission Date: 20200122
  Serious: Yes (Hospitalization)
  Sender: FDA-Public Use
  Company Number: CZ-CELLTRION INC.-2017CZ001441

PATIENT

DRUGS (10)
  1. LETROX [Concomitant]
     Active Substance: LEVOTHYROXINE SODIUM
     Indication: HYPOTHYROIDISM
     Dosage: 75 MG, EVERY 24 HOURS
     Route: 048
     Dates: start: 20100201
  2. DICLOFENAC DUO [Concomitant]
     Active Substance: DICLOFENAC SODIUM
     Indication: ANKYLOSING SPONDYLITIS
     Dosage: 75 MG EVERY 24 HOURS
     Route: 048
     Dates: start: 20150201
  3. METHOTREXATE (METHOTREXATE SODIUM) [Concomitant]
     Active Substance: METHOTREXATE SODIUM
     Indication: ANKYLOSING SPONDYLITIS
     Dosage: 20 MG, 1/WEEK
     Route: 048
     Dates: start: 20150201
  4. REMSIMA [Suspect]
     Active Substance: INFLIXIMAB
     Dosage: 400 MG, UNK
     Route: 042
     Dates: start: 20160708, end: 20160708
  5. REMSIMA [Suspect]
     Active Substance: INFLIXIMAB
     Dosage: 400 MG, UNK
     Route: 042
     Dates: start: 20161108, end: 20161108
  6. REMSIMA [Suspect]
     Active Substance: INFLIXIMAB
     Dosage: 400 MG, UNK
     Route: 042
     Dates: start: 20160819, end: 20160819
  7. MEDROL [Concomitant]
     Active Substance: METHYLPREDNISOLONE
     Indication: ANKYLOSING SPONDYLITIS
     Dosage: 4 MG, EVERY 24 HOURS
     Route: 048
     Dates: start: 20150601
  8. REMSIMA [Suspect]
     Active Substance: INFLIXIMAB
     Indication: ANKYLOSING SPONDYLITIS
     Dosage: 400 MG, UNK
     Route: 042
     Dates: start: 20160524, end: 20160524
  9. REMSIMA [Suspect]
     Active Substance: INFLIXIMAB
     Dosage: 400 MG, UNK
     Route: 042
     Dates: start: 20160610, end: 20160610
  10. REMSIMA [Suspect]
     Active Substance: INFLIXIMAB
     Dosage: 400 MG, UNK
     Route: 042
     Dates: start: 20160930, end: 20160930

REACTIONS (1)
  - Uterine leiomyoma [Recovered/Resolved]

NARRATIVE: CASE EVENT DATE: 20161205
